FAERS Safety Report 23725284 (Version 1)
Quarter: 2024Q2

REPORT INFORMATION
  Report Type: Spontaneous
  Country: US (occurrence: US)
  Receive Date: 20240410
  Receipt Date: 20240410
  Transmission Date: 20240716
  Serious: Yes (Death)
  Sender: FDA-Public Use
  Company Number: US-DRL-USA-LIT/USA/24/0005570

PATIENT
  Age: 44 Year
  Sex: Male

DRUGS (3)
  1. DOXYCYCLINE [Suspect]
     Active Substance: DOXYCYCLINE
     Indication: Rickettsiosis
  2. RITUXIMAB [Suspect]
     Active Substance: RITUXIMAB
     Indication: Cutaneous vasculitis
  3. PREDNISONE [Suspect]
     Active Substance: PREDNISONE
     Indication: Rickettsiosis

REACTIONS (2)
  - Condition aggravated [Fatal]
  - Drug ineffective [Fatal]
